FAERS Safety Report 15931101 (Version 1)
Quarter: 2019Q1

REPORT INFORMATION
  Report Type: Spontaneous
  Country: US (occurrence: US)
  Receive Date: 20190207
  Receipt Date: 20190207
  Transmission Date: 20190417
  Serious: No
  Sender: FDA-Public Use
  Company Number: PHEH2019US004615

PATIENT
  Sex: Male
  Weight: 108.8 kg

DRUGS (2)
  1. ZIPRASIDONE HCL [Suspect]
     Active Substance: ZIPRASIDONE HYDROCHLORIDE
     Dosage: 60 MG, BID
     Route: 048
  2. ZIPRASIDONE HCL [Suspect]
     Active Substance: ZIPRASIDONE HYDROCHLORIDE
     Indication: BIPOLAR DISORDER
     Dosage: 80 MG, BID
     Route: 048

REACTIONS (4)
  - Insomnia [Unknown]
  - Wrong technique in product usage process [Not Recovered/Not Resolved]
  - Grandiosity [Unknown]
  - Product taste abnormal [Unknown]
